FAERS Safety Report 5508220-X (Version None)
Quarter: 2007Q4

REPORT INFORMATION
  Report Type: 
  Country: None (occurrence: None)
  Receive Date: 20071106
  Receipt Date: 20071030
  Transmission Date: 20080405
  Serious: Yes (Hospitalization)
  Sender: FDA-Public Use
  Company Number: IT-ABBOTT-07P-083-0422719-00

PATIENT
  Sex: Female

DRUGS (3)
  1. KLACID [Suspect]
     Indication: PNEUMONIA
     Route: 048
     Dates: start: 20071022, end: 20071023
  2. CEFTRIAXONE SODIUM [Suspect]
     Indication: PNEUMONIA
     Route: 042
     Dates: start: 20071022, end: 20071022
  3. ENOXAPARIN SODIUM [Concomitant]
     Indication: DRUG USE FOR UNKNOWN INDICATION
     Route: 042

REACTIONS (3)
  - DERMATITIS [None]
  - DYSPNOEA [None]
  - URTICARIA [None]
